FAERS Safety Report 24662625 (Version 2)
Quarter: 2024Q4

REPORT INFORMATION
  Report Type: Spontaneous
  Country: US (occurrence: US)
  Receive Date: 20241126
  Receipt Date: 20241209
  Transmission Date: 20250115
  Serious: No
  Sender: ALEXION PHARMACEUTICALS
  Company Number: US-AstraZeneca-CH-00755524AP

PATIENT
  Age: 57 Year

DRUGS (2)
  1. FASLODEX [Suspect]
     Active Substance: FULVESTRANT
     Indication: Breast cancer metastatic
     Dosage: 250 MILLIGRAM PER MILLILITRE
  2. FASLODEX [Suspect]
     Active Substance: FULVESTRANT

REACTIONS (3)
  - Incorrect route of product administration [Unknown]
  - Wrong technique in product usage process [Unknown]
  - Injection site pain [Unknown]
